FAERS Safety Report 4672645-5 (Version None)
Quarter: 2005Q2

REPORT INFORMATION
  Report Type: 
  Country: None (occurrence: None)
  Receive Date: 20050524
  Receipt Date: 20050518
  Transmission Date: 20051028
  Serious: Yes (Death)
  Sender: FDA-Public Use
  Company Number: GB-MERCK-0505GBR00149

PATIENT
  Age: 71 Year
  Sex: Male

DRUGS (8)
  1. SINGULAIR [Suspect]
     Route: 048
  2. TIOTROPIUM BROMIDE [Suspect]
     Route: 055
  3. BECLOMETHASONE DIPROPIONATE [Suspect]
     Route: 065
  4. OXYGEN [Suspect]
     Route: 065
  5. QUININE [Suspect]
     Route: 065
  6. ALBUTEROL [Suspect]
     Route: 055
  7. SALMETEROL [Suspect]
     Route: 055
  8. FLUTICASONE PROPIONATE AND SALMETEROL XINAFOATE [Suspect]
     Route: 055

REACTIONS (2)
  - CHRONIC OBSTRUCTIVE PULMONARY DISEASE [None]
  - DIARRHOEA [None]
